FAERS Safety Report 15456967 (Version 10)
Quarter: 2019Q2

REPORT INFORMATION
  Report Type: Report from Study
  Country: US (occurrence: US)
  Receive Date: 20181002
  Receipt Date: 20190415
  Transmission Date: 20190711
  Serious: Yes (Death, Life-Threatening, Hospitalization)
  Sender: FDA-Public Use
  Company Number: US-ACTELION-A-NJ2018-179313

PATIENT
  Age: 85 Year
  Sex: Female

DRUGS (9)
  1. ZETIA [Concomitant]
     Active Substance: EZETIMIBE
     Dosage: 10 MG, QD
  2. OPSUMIT [Suspect]
     Active Substance: MACITENTAN
     Indication: PULMONARY ARTERIAL HYPERTENSION
     Dosage: 10 MG, QD
     Route: 048
     Dates: start: 20160928, end: 20181124
  3. LISINOPRIL. [Concomitant]
     Active Substance: LISINOPRIL
     Dosage: 25 MG, QD
  4. INSULIN [Concomitant]
     Active Substance: INSULIN NOS
  5. TRAZODONE [Concomitant]
     Active Substance: TRAZODONE HYDROCHLORIDE
  6. AMLODIPINE [Concomitant]
     Active Substance: AMLODIPINE BESYLATE
     Dosage: 5 MG, QD
  7. SYNTHROID [Concomitant]
     Active Substance: LEVOTHYROXINE SODIUM
     Dosage: 0.025 MG, QD
  8. COUMADIN [Concomitant]
     Active Substance: WARFARIN SODIUM
     Dosage: 1-2 MG Q1WEEK
  9. LASIX [Concomitant]
     Active Substance: FUROSEMIDE
     Dosage: 40 MG, BID
     Route: 048

REACTIONS (30)
  - Slow response to stimuli [Fatal]
  - Urinary tract infection [Unknown]
  - Acute kidney injury [Unknown]
  - Troponin increased [Unknown]
  - Condition aggravated [Fatal]
  - Blood bilirubin increased [Recovering/Resolving]
  - Peripheral swelling [Unknown]
  - Hypoglycaemia [Recovered/Resolved]
  - Blood glucose decreased [Recovered/Resolved]
  - Hospice care [Unknown]
  - End stage renal disease [Fatal]
  - Hyperkalaemia [Recovered/Resolved]
  - Jugular vein distension [Unknown]
  - Crepitations [Unknown]
  - Pulmonary arterial hypertension [Fatal]
  - Blood creatinine increased [Recovering/Resolving]
  - Hospitalisation [Not Recovered/Not Resolved]
  - Asthenia [Not Recovered/Not Resolved]
  - Rehabilitation therapy [Unknown]
  - Mental status changes [Recovered/Resolved]
  - Pulmonary hypertension [Unknown]
  - Hypotension [Unknown]
  - Hypovolaemia [Unknown]
  - Hyperhidrosis [Recovered/Resolved]
  - Chronic kidney disease [Unknown]
  - Right ventricular failure [Fatal]
  - Confusional state [Recovered/Resolved]
  - Bladder discomfort [Unknown]
  - Urinary incontinence [Unknown]
  - Hypothermia [Recovered/Resolved]

NARRATIVE: CASE EVENT DATE: 20180904
